FAERS Safety Report 10375972 (Version 1)
Quarter: 2014Q1

REPORT INFORMATION
  Report Type: Spontaneous
  Country: US (occurrence: None)
  Receive Date: 20140306
  Receipt Date: 20140306
  Transmission Date: 20141002
  Serious: Yes (Hospitalization)
  Sender: FDA-Public Use
  Company Number: 163-21880-13034825

PATIENT
  Age: 73 Year
  Sex: Female

DRUGS (13)
  1. REVLIMID (LENALIDOMIDE) (15 MILLIGRAM, CAPSULES) [Suspect]
     Indication: PLASMA CELL MYELOMA
     Dosage: 21 IN 28 D, PO
     Route: 048
     Dates: start: 20130228
  2. MORPHINE(MORPHINE) [Concomitant]
  3. POTASSIUM(POTASSIUM) [Concomitant]
  4. HYDROCHLOROTHIAZIDE(HYDROCHLOROTHIAZIDE) [Concomitant]
  5. SENNA(SENNA) [Concomitant]
  6. LEVOTHYROXINE(LEVOTHYROXINE) [Concomitant]
  7. OXYCODONE(OXYCODONE) [Concomitant]
  8. MULTIVITAMINS(MULTIVITAMINS) [Concomitant]
  9. METOPROLOL(METOPROLOL) [Concomitant]
  10. CALCIUM (CALCIUM) [Concomitant]
  11. MIRALAX(MACROGOL) [Concomitant]
  12. OMEGA-3(OMEGA-3 TRIGLYCERIDES) [Concomitant]
  13. ASPIRIN(ACETYLSALICYLIC ACID) [Concomitant]

REACTIONS (3)
  - Dehydration [None]
  - Headache [None]
  - Gastric infection [None]
